FAERS Safety Report 7232345-4 (Version None)
Quarter: 2011Q1

REPORT INFORMATION
  Report Type: 
  Country: None (occurrence: None)
  Receive Date: 20110106
  Receipt Date: 20101231
  Transmission Date: 20110831
  Serious: Yes (Other)
  Sender: FDA-Public Use
  Company Number: 20109025

PATIENT
  Sex: Male

DRUGS (1)
  1. LIORESAL INTRATHECAL (BACLOFEN INJECTON) [Suspect]
     Indication: MUSCLE SPASTICITY
     Dosage: SEE B5 MG, DAILY, INTRATHECAL
     Route: 037

REACTIONS (4)
  - DEVICE POWER SOURCE ISSUE [None]
  - IMPLANT SITE EFFUSION [None]
  - DEVICE MATERIAL ISSUE [None]
  - NO THERAPEUTIC RESPONSE [None]
